FAERS Safety Report 18953289 (Version 1)
Quarter: 2021Q1

REPORT INFORMATION
  Report Type: Spontaneous
  Country: US (occurrence: US)
  Receive Date: 20210301
  Receipt Date: 20210301
  Transmission Date: 20210420
  Serious: Yes (Life-Threatening, Hospitalization)
  Sender: FDA-Public Use
  Company Number: US-MYLANLABS-2021M1011465

PATIENT
  Age: 62 Year
  Sex: Female
  Weight: 66.7 kg

DRUGS (3)
  1. HEPARIN [Suspect]
     Active Substance: HEPARIN SODIUM
     Indication: ANTICOAGULANT THERAPY
     Dosage: 40U/KG THREE BOLUS; THREE DOSES
     Route: 065
  2. HEPARIN [Suspect]
     Active Substance: HEPARIN SODIUM
     Dosage: INFUSION DOSED BETWEEN 16U/KG/HR?26U/KG/HR FOR 3 DAYS, INFUSION
  3. ASPIRIN                            /00002701/ [Concomitant]
     Active Substance: ASPIRIN
     Indication: PRODUCT USED FOR UNKNOWN INDICATION
     Dosage: LOW?DOSE
     Route: 065

REACTIONS (11)
  - Splenic vein thrombosis [Recovered/Resolved]
  - Heparin-induced thrombocytopenia [Recovered/Resolved]
  - Atrial fibrillation [Recovered/Resolved]
  - Cerebrovascular accident [Recovered/Resolved]
  - Haemoperitoneum [Recovered/Resolved]
  - Splenic infarction [Recovered/Resolved]
  - Splenic haemorrhage [Recovered/Resolved]
  - Paradoxical drug reaction [Recovered/Resolved]
  - Atrial thrombosis [Recovered/Resolved]
  - Hypotension [Recovered/Resolved]
  - Anaemia [Recovered/Resolved]
